FAERS Safety Report 26087870 (Version 1)
Quarter: 2025Q4

REPORT INFORMATION
  Report Type: Report from Study
  Country: US (occurrence: US)
  Receive Date: 20251125
  Receipt Date: 20251125
  Transmission Date: 20260117
  Serious: Yes (Other)
  Sender: SUPERNUS
  Company Number: US-SUP-SUP202511-004765

PATIENT
  Age: 12 Year
  Sex: Male
  Weight: 40.82 kg

DRUGS (1)
  1. QELBREE [Suspect]
     Active Substance: VILOXAZINE HYDROCHLORIDE
     Indication: Attention deficit hyperactivity disorder
     Dosage: ONCE NIGHTLY
     Route: 048

REACTIONS (5)
  - Hallucination [Unknown]
  - Fatigue [Unknown]
  - Somnolence [Unknown]
  - Migraine [Unknown]
  - Vomiting [Unknown]
